FAERS Safety Report 9866471 (Version 1)
Quarter: 2014Q1

REPORT INFORMATION
  Report Type: Spontaneous
  Country: AR (occurrence: AR)
  Receive Date: 20140204
  Receipt Date: 20140204
  Transmission Date: 20141002
  Serious: Yes (Death, Other)
  Sender: FDA-Public Use
  Company Number: AR-AMGEN-ARGSP2014007045

PATIENT
  Age: 77 Year
  Sex: Female

DRUGS (2)
  1. ENBREL [Suspect]
     Indication: RHEUMATOID ARTHRITIS
     Dosage: 50 MG, WEEKLY
     Route: 065
     Dates: start: 20000408
  2. OPTAMOX                            /00249602/ [Concomitant]
     Dosage: UNK

REACTIONS (5)
  - Vascular dementia [Fatal]
  - Dementia Alzheimer^s type [Unknown]
  - Decreased appetite [Unknown]
  - Hypertension [Unknown]
  - Influenza [Unknown]
